FAERS Safety Report 16892683 (Version 1)
Quarter: 2019Q4

REPORT INFORMATION
  Report Type: Spontaneous
  Country: US (occurrence: US)
  Receive Date: 20191007
  Receipt Date: 20191007
  Transmission Date: 20200122
  Serious: Yes (Other)
  Sender: FDA-Public Use
  Company Number: US-PFIZER INC-2019429439

PATIENT
  Age: 62 Year
  Sex: Female

DRUGS (1)
  1. IBRANCE [Suspect]
     Active Substance: PALBOCICLIB
     Indication: BREAST CANCER FEMALE
     Dosage: 125 MG, CYCLIC (1X/DAY, 21 DAYS ON/7 DAYS OFF)
     Route: 048
     Dates: start: 20180623

REACTIONS (5)
  - Fatigue [Unknown]
  - Thrombosis [Recovered/Resolved]
  - Pain [Recovering/Resolving]
  - Vomiting [Unknown]
  - Abdominal pain upper [Unknown]
